FAERS Safety Report 17547444 (Version 1)
Quarter: 2020Q1

REPORT INFORMATION
  Report Type: Spontaneous
  Country: CA (occurrence: CA)
  Receive Date: 20200316
  Receipt Date: 20200316
  Transmission Date: 20200409
  Serious: Yes (Death, Hospitalization)
  Sender: FDA-Public Use
  Company Number: NVSC2020CA071971

PATIENT
  Age: 83 Year
  Sex: Female
  Weight: 53 kg

DRUGS (10)
  1. SANDOSTATIN [Suspect]
     Active Substance: OCTREOTIDE ACETATE
     Indication: CARCINOID TUMOUR
     Dosage: 30 MG, QMO
     Route: 030
  2. DIOVAN [Suspect]
     Active Substance: VALSARTAN
     Indication: PRODUCT USED FOR UNKNOWN INDICATION
     Dosage: UNK
     Route: 065
  3. AMLODIPINE BESILATE [Concomitant]
     Active Substance: AMLODIPINE BESYLATE
     Indication: PRODUCT USED FOR UNKNOWN INDICATION
     Dosage: UNK
     Route: 065
  4. SANDOSTATIN [Suspect]
     Active Substance: OCTREOTIDE ACETATE
     Dosage: 40 MG, QMO
     Route: 030
  5. PANTOLOC [Concomitant]
     Active Substance: PANTOPRAZOLE SODIUM
     Indication: PRODUCT USED FOR UNKNOWN INDICATION
     Dosage: UNK
     Route: 065
  6. ECONAZOLE NITRATE. [Concomitant]
     Active Substance: ECONAZOLE NITRATE
     Indication: PRODUCT USED FOR UNKNOWN INDICATION
     Dosage: UNK
     Route: 065
  7. SYNTHROID [Concomitant]
     Active Substance: LEVOTHYROXINE SODIUM
     Indication: PRODUCT USED FOR UNKNOWN INDICATION
     Dosage: UNK
     Route: 065
  8. DEXAMETHASONE. [Suspect]
     Active Substance: DEXAMETHASONE
     Indication: PRODUCT USED FOR UNKNOWN INDICATION
     Dosage: 0.5 MG, QD
     Route: 065
  9. SANDOSTATIN [Suspect]
     Active Substance: OCTREOTIDE ACETATE
     Dosage: 30 MG, QMO
     Route: 030
  10. AMINO ACIDS NOS [Concomitant]
     Active Substance: AMINO ACIDS, SOURCE UNSPECIFIED
     Indication: PRODUCT USED FOR UNKNOWN INDICATION
     Dosage: UNK
     Route: 065

REACTIONS (26)
  - Blood pressure systolic increased [Fatal]
  - Arthralgia [Fatal]
  - Eructation [Fatal]
  - Nausea [Fatal]
  - Abdominal pain upper [Fatal]
  - Back pain [Fatal]
  - Heart rate decreased [Fatal]
  - Insomnia [Fatal]
  - Needle issue [Fatal]
  - Vomiting [Fatal]
  - Blood pressure diastolic decreased [Fatal]
  - Blood pressure increased [Fatal]
  - Chest discomfort [Fatal]
  - Drug intolerance [Fatal]
  - Hunger [Fatal]
  - Fatigue [Fatal]
  - Agitation [Fatal]
  - Gait disturbance [Fatal]
  - Drug ineffective [Fatal]
  - Blood glucose increased [Fatal]
  - Dyspnoea [Fatal]
  - Abdominal pain [Fatal]
  - Gastrointestinal inflammation [Fatal]
  - Weight decreased [Fatal]
  - Intestinal obstruction [Fatal]
  - Abdominal distension [Fatal]
